FAERS Safety Report 4592911-1 (Version None)
Quarter: 2005Q1

REPORT INFORMATION
  Report Type: 
  Country: None (occurrence: None)
  Receive Date: 20050125
  Receipt Date: 20040929
  Transmission Date: 20050727
  Serious: No
  Sender: FDA-Public Use
  Company Number: USA040876297

PATIENT
  Age: 59 Year
  Sex: Female

DRUGS (1)
  1. FORTEO [Suspect]
     Indication: INTERVERTEBRAL DISC DEGENERATION
     Dosage: 20 UG/1 DAY
     Dates: start: 20040814

REACTIONS (6)
  - ARTHRALGIA [None]
  - ARTHRITIS [None]
  - DIZZINESS [None]
  - GRIP STRENGTH DECREASED [None]
  - HEADACHE [None]
  - RASH [None]
